FAERS Safety Report 9804086 (Version 2)
Quarter: 2014Q1

REPORT INFORMATION
  Report Type: Spontaneous
  Country: JP (occurrence: None)
  Receive Date: 20140103
  Receipt Date: 20140127
  Transmission Date: 20141002
  Serious: Yes (Other)
  Sender: FDA-Public Use
  Company Number: SYM-2013-14433

PATIENT
  Sex: 0

DRUGS (4)
  1. 5 FU (FLUOROURACIL) (FLUOROURACIL) [Suspect]
     Indication: COLORECTAL CANCER METASTATIC
     Route: 040
  2. BEVACIZUMAB [Suspect]
     Dosage: (NOT OTHERWISE SPECIFIED)
     Route: 042
  3. L-LEUCOVORIN [Suspect]
     Dosage: (NOT OTHERWISE SPECIFIED)
     Route: 042
  4. IRINOTECAN (IRINOTECAN) (SOLUTION FOR INFUSION) (IRINOTECAN) [Suspect]
     Dosage: NOT OTHERWISE SPECIFIED
     Route: 042

REACTIONS (6)
  - Stomatitis [None]
  - Neutropenia [None]
  - Toxicity to various agents [None]
  - Disease progression [None]
  - Leukopenia [None]
  - Anaemia [None]
